FAERS Safety Report 6656094-6 (Version None)
Quarter: 2010Q1

REPORT INFORMATION
  Report Type: 
  Country: None (occurrence: None)
  Receive Date: 20100329
  Receipt Date: 20100323
  Transmission Date: 20100710
  Serious: Yes (Life-Threatening, Hospitalization, Disabling)
  Sender: FDA-Public Use
  Company Number: B0634677A

PATIENT
  Sex: Female

DRUGS (9)
  1. HYCAMTIN [Suspect]
     Dosage: 3.25MG PER DAY
     Route: 048
     Dates: start: 20100208, end: 20100212
  2. METFORMIN HYDROCHLORIDE [Concomitant]
     Route: 048
  3. MEGESTROL [Concomitant]
     Route: 048
  4. LOPERAMIDE [Concomitant]
     Route: 048
  5. DOMPERIDONE [Concomitant]
     Dosage: 10MG THREE TIMES PER DAY
     Route: 048
  6. NITRAZEPAM [Concomitant]
     Route: 048
  7. CODEINE SULFATE [Concomitant]
     Route: 048
  8. PARACETAMOL [Concomitant]
     Route: 048
  9. CYCLIZINE [Concomitant]
     Dosage: 50MG THREE TIMES PER DAY
     Route: 048

REACTIONS (6)
  - CONFUSIONAL STATE [None]
  - FEELING ABNORMAL [None]
  - FULL BLOOD COUNT DECREASED [None]
  - NEUTROPENIA [None]
  - PANCYTOPENIA [None]
  - THROMBOCYTOPENIA [None]
